FAERS Safety Report 22222558 (Version 1)
Quarter: 2023Q2

REPORT INFORMATION
  Report Type: Spontaneous
  Country: TR (occurrence: TR)
  Receive Date: 20230418
  Receipt Date: 20230418
  Transmission Date: 20230722
  Serious: Yes (Hospitalization, Other)
  Sender: FDA-Public Use
  Company Number: TR-Accord-308359

PATIENT
  Age: 63 Year
  Sex: Male

DRUGS (6)
  1. PRASUGREL [Suspect]
     Active Substance: PRASUGREL
     Indication: Product used for unknown indication
     Route: 048
  2. ASPIRIN [Concomitant]
     Active Substance: ASPIRIN
     Indication: Product used for unknown indication
  3. CLOPIDOGREL [Concomitant]
     Active Substance: CLOPIDOGREL BISULFATE
     Indication: Product used for unknown indication
  4. METOPROLOL [Concomitant]
     Active Substance: METOPROLOL
     Indication: Product used for unknown indication
  5. RAMIPRIL [Concomitant]
     Active Substance: RAMIPRIL
     Indication: Product used for unknown indication
  6. PRASUGREL [Suspect]
     Active Substance: PRASUGREL
     Indication: Product used for unknown indication
     Dosage: LOADING DOSE
     Route: 048

REACTIONS (1)
  - Drug-induced liver injury [Recovered/Resolved]
